FAERS Safety Report 6202033-1 (Version None)
Quarter: 2009Q2

REPORT INFORMATION
  Report Type: 
  Country: None (occurrence: None)
  Receive Date: 20090526
  Receipt Date: 20090515
  Transmission Date: 20091009
  Serious: Yes (Death)
  Sender: FDA-Public Use
  Company Number: A0785897A

PATIENT
  Age: 48 Year
  Sex: Male
  Weight: 81.8 kg

DRUGS (3)
  1. AVANDIA [Suspect]
     Indication: DIABETES MELLITUS
     Dosage: 4MG TWICE PER DAY
     Route: 048
  2. ALTACE [Concomitant]
  3. TRICOR [Concomitant]

REACTIONS (1)
  - MYOCARDIAL INFARCTION [None]
